FAERS Safety Report 5114444-6 (Version None)
Quarter: 2006Q3

REPORT INFORMATION
  Report Type: 
  Country: None (occurrence: None)
  Receive Date: 20060731
  Receipt Date: 20060527
  Transmission Date: 20061208
  Serious: No
  Sender: FDA-Public Use
  Company Number: 2006PV014620

PATIENT
  Age: 56 Year
  Sex: Female
  Weight: 136.0791 kg

DRUGS (6)
  1. BYETTA [Suspect]
     Indication: DIABETES MELLITUS NON-INSULIN-DEPENDENT
     Dosage: SEE IMAGE
     Route: 058
     Dates: start: 20060525, end: 20060525
  2. BYETTA [Suspect]
     Indication: DIABETES MELLITUS NON-INSULIN-DEPENDENT
     Dosage: SEE IMAGE
     Route: 058
     Dates: start: 20060525
  3. LANTUS [Concomitant]
  4. HUMULIN 70/30 [Concomitant]
  5. FORTAMET [Concomitant]
  6. FORTAMET [Concomitant]

REACTIONS (1)
  - BLOOD GLUCOSE INCREASED [None]
